FAERS Safety Report 7451147-7 (Version None)
Quarter: 2011Q2

REPORT INFORMATION
  Report Type: 
  Country: None (occurrence: None)
  Receive Date: 20110502
  Receipt Date: 20110420
  Transmission Date: 20111010
  Serious: Yes (Congenital Anomaly)
  Sender: FDA-Public Use
  Company Number: PHHO2011BF05028

PATIENT
  Sex: Male
  Weight: 2.6 kg

DRUGS (1)
  1. ARTEMETHER,BENFLUMETOL [Suspect]
     Indication: MALARIA
     Dosage: UNK

REACTIONS (2)
  - DRUG EXPOSURE DURING PREGNANCY [None]
  - POLYDACTYLY [None]
